FAERS Safety Report 13859515 (Version 3)
Quarter: 2017Q3

REPORT INFORMATION
  Report Type: Spontaneous
  Country: US (occurrence: US)
  Receive Date: 20170811
  Receipt Date: 20170912
  Transmission Date: 20171127
  Serious: No
  Sender: FDA-Public Use
  Company Number: US-PFIZER INC-2017348957

PATIENT
  Age: 8 Year
  Sex: Female
  Weight: 39 kg

DRUGS (5)
  1. GENOTROPIN MQ [Suspect]
     Active Substance: SOMATROPIN
     Indication: PRADER-WILLI SYNDROME
     Dosage: 0.6 MG, 1X/DAY (INTO THE SKIN NIGHTLY AT BEDTIME)
     Dates: start: 20160829
  2. GENOTROPIN MQ [Suspect]
     Active Substance: SOMATROPIN
     Dosage: 0.6 MG, 1X/DAYINJECTION
     Dates: start: 2015
  3. CELEXA [Concomitant]
     Active Substance: CITALOPRAM HYDROBROMIDE
     Dosage: 10 MG, 1X/DAY
     Route: 048
     Dates: start: 2015
  4. CELEXA [Concomitant]
     Active Substance: CITALOPRAM HYDROBROMIDE
     Indication: ANXIETY
     Dosage: 10 MG, DAILY
     Route: 048
     Dates: start: 20160823
  5. GENOTROPIN MQ [Suspect]
     Active Substance: SOMATROPIN
     Indication: GROWTH HORMONE DEFICIENCY
     Dosage: 0.8 MG, DAILY
     Dates: start: 2015

REACTIONS (8)
  - Compulsive hoarding [Unknown]
  - Abnormal behaviour [Unknown]
  - Weight increased [Unknown]
  - Aggression [Unknown]
  - Hunger [Unknown]
  - Acne [Unknown]
  - Skin odour abnormal [Unknown]
  - Blood glucose increased [Unknown]
